FAERS Safety Report 8809807 (Version 1)
Quarter: 2012Q4

REPORT INFORMATION
  Report Type: 
  Country: CA (occurrence: CA)
  Receive Date: 20120926
  Receipt Date: 20120926
  Transmission Date: 20130627
  Serious: Yes (Hospitalization, Other)
  Sender: FDA-Public Use
  Company Number: CA-ROCHE-CID000000002167259

PATIENT
  Age: 52 Year
  Sex: Male

DRUGS (1)
  1. ALTEPLASE [Suspect]
     Indication: ISCHAEMIC STROKE
     Route: 042

REACTIONS (11)
  - Acute myocardial infarction [Unknown]
  - Chest pain [Unknown]
  - Ventricular extrasystoles [Unknown]
  - Ventricular tachycardia [Unknown]
  - Electrocardiogram ST segment elevation [Unknown]
  - Cardiomegaly [Unknown]
  - Pulmonary oedema [Unknown]
  - Pleural effusion [Unknown]
  - Dyspnoea [Unknown]
  - Orthopnoea [Unknown]
  - Oliguria [Unknown]
